FAERS Safety Report 5159412-3 (Version None)
Quarter: 2006Q4

REPORT INFORMATION
  Report Type: 
  Country: None (occurrence: None)
  Receive Date: 20061122
  Receipt Date: 20061122
  Transmission Date: 20070319
  Serious: Yes (Death, Life-Threatening, Disabling, Other)
  Sender: FDA-Public Use
  Company Number: None

PATIENT
  Sex: Female
  Weight: 113.3993 kg

DRUGS (1)
  1. ZYPREXA [Suspect]
     Indication: NERVOUSNESS
     Dosage: 5 MG
     Dates: start: 20021201, end: 20021222

REACTIONS (4)
  - APPARENT LIFE THREATENING EVENT [None]
  - DIABETES MELLITUS [None]
  - MEDICATION ERROR [None]
  - NERVOUSNESS [None]
